FAERS Safety Report 19046699 (Version 2)
Quarter: 2021Q1

REPORT INFORMATION
  Report Type: Spontaneous
  Country: US (occurrence: US)
  Receive Date: 20210322
  Receipt Date: 20210323
  Transmission Date: 20210420
  Serious: Yes (Hospitalization)
  Sender: FDA-Public Use
  Company Number: US-ELI_LILLY_AND_COMPANY-US202103007792

PATIENT
  Age: 79 Year
  Sex: Male

DRUGS (1)
  1. BAMLANIVIMAB. [Suspect]
     Active Substance: BAMLANIVIMAB
     Indication: COVID-19
     Dosage: UNK, UNKNOWN
     Route: 065
     Dates: start: 20210113, end: 20210113

REACTIONS (4)
  - COVID-19 pneumonia [Unknown]
  - Drug ineffective [Unknown]
  - COVID-19 [Recovering/Resolving]
  - Weight decreased [Unknown]

NARRATIVE: CASE EVENT DATE: 20210116
